FAERS Safety Report 6910902-X (Version None)
Quarter: 2010Q3

REPORT INFORMATION
  Report Type: 
  Country: None (occurrence: None)
  Receive Date: 20100806
  Receipt Date: 20100802
  Transmission Date: 20110219
  Serious: Yes (Death, Other)
  Sender: FDA-Public Use
  Company Number: FR-CELGENEUS-056-C5013-10052219

PATIENT
  Sex: Female
  Weight: 70 kg

DRUGS (2)
  1. LENALIDOMIDE [Suspect]
     Route: 048
     Dates: start: 20070209, end: 20090306
  2. VIDAZA [Concomitant]
     Route: 065
     Dates: start: 20090720, end: 20100209

REACTIONS (2)
  - ACUTE MYELOID LEUKAEMIA [None]
  - MYELODYSPLASTIC SYNDROME TRANSFORMATION [None]
